FAERS Safety Report 7249995-1 (Version None)
Quarter: 2011Q1

REPORT INFORMATION
  Report Type: 
  Country: None (occurrence: None)
  Receive Date: 20110121
  Receipt Date: 20110121
  Transmission Date: 20110831
  Serious: Yes (Other)
  Sender: FDA-Public Use
  Company Number: None

PATIENT
  Age: 56 Year
  Sex: Female
  Weight: 63.05 kg

DRUGS (2)
  1. VORINOSTAT (SAHA)- 300MG/MERCK + CO. [Suspect]
     Indication: METASTASES TO CENTRAL NERVOUS SYSTEM
     Dosage: 300MG/WITH RT-5X WK/ORAL
     Route: 048
     Dates: start: 20100823, end: 20100913
  2. EXTERNAL RADIATION THERAPY [Concomitant]

REACTIONS (4)
  - SKIN ULCER [None]
  - PAIN [None]
  - OEDEMA PERIPHERAL [None]
  - ABASIA [None]
